FAERS Safety Report 23153168 (Version 1)
Quarter: 2023Q4

REPORT INFORMATION
  Report Type: Spontaneous
  Country: US (occurrence: None)
  Receive Date: 20231106
  Receipt Date: 20231106
  Transmission Date: 20240109
  Serious: No
  Sender: FDA-Public Use
  Company Number: None

PATIENT
  Age: 57 Year
  Sex: Female
  Weight: 35.97 kg

DRUGS (1)
  1. FULVESTRANT [Suspect]
     Active Substance: FULVESTRANT
     Indication: Breast cancer female
     Dosage: 500MG EVERY MONTH IM
     Route: 030
     Dates: start: 20220713, end: 20230915

REACTIONS (1)
  - Disease progression [None]

NARRATIVE: CASE EVENT DATE: 20231030
